FAERS Safety Report 8998509 (Version 6)
Quarter: 2013Q3

REPORT INFORMATION
  Report Type: Report from Study
  Country: JP (occurrence: JP)
  Receive Date: 20130103
  Receipt Date: 20130730
  Transmission Date: 20140515
  Serious: Yes (Death, Hospitalization)
  Sender: FDA-Public Use
  Company Number: JP-PFIZER INC-2012331383

PATIENT
  Age: 45 Year
  Sex: Male
  Weight: 61.9 kg

DRUGS (17)
  1. XALKORI [Suspect]
     Indication: NON-SMALL CELL LUNG CANCER
     Dosage: 250 MG, 2X/DAY
     Route: 048
     Dates: start: 20120920, end: 20121020
  2. LOXONIN [Concomitant]
     Dosage: 60 MG, 3X/DAY
     Route: 048
     Dates: end: 20121027
  3. MAG-LAX [Concomitant]
     Dosage: 330 MG, 3X/DAY
     Route: 048
     Dates: end: 20121027
  4. FENTOS TAPE [Concomitant]
     Dosage: 4 MG, 1X/DAY
     Route: 062
     Dates: start: 20120921, end: 20121009
  5. PHENOBAL [Concomitant]
     Dosage: 30 MG, 2X/DAY
     Route: 048
     Dates: start: 20120921, end: 20121027
  6. ZYPREXA [Concomitant]
     Dosage: 5 MG, 1X/DAY
     Route: 048
     Dates: start: 20121001, end: 20121027
  7. PRIMPERAN [Concomitant]
     Dosage: 5 MG, 3X/DAY
     Route: 048
     Dates: start: 20120928, end: 20121027
  8. RINDERON [Concomitant]
     Dosage: 2 MG, 1X/DAY
     Route: 048
     Dates: start: 20121002, end: 20121022
  9. NAUZELIN [Concomitant]
     Dosage: 10 MG, 3X/DAY
     Route: 048
     Dates: start: 20121005, end: 20121027
  10. CALONAL [Concomitant]
     Dosage: 400 MG, 3X/DAY
     Route: 048
     Dates: start: 20121006, end: 20121027
  11. GENINAX [Concomitant]
     Dosage: 400 MG, 1X/DAY
     Route: 048
     Dates: start: 20121009, end: 20121015
  12. BAKTAR [Concomitant]
     Dosage: ONCE DAILY
     Route: 048
     Dates: start: 20121016, end: 20121027
  13. PURSENNID [Concomitant]
     Dosage: 12 MG, AS NEEDED
     Route: 048
     Dates: end: 20121027
  14. KYTRIL [Concomitant]
     Dosage: 2 MG, AS NEEDED
     Route: 048
     Dates: start: 20120929, end: 20121027
  15. BFLUID [Concomitant]
     Dosage: 1000 ML, 1X/DAY
     Dates: end: 20121001
  16. BFLUID [Concomitant]
     Dosage: 1000 ML, 1X/DAY
     Dates: start: 20121017, end: 20121107
  17. GLYCEREB [Concomitant]
     Dosage: 200 ML, 2X/DAY
     Dates: start: 20121017, end: 20121117

REACTIONS (4)
  - Interstitial lung disease [Recovering/Resolving]
  - Disease progression [Fatal]
  - Non-small cell lung cancer [Fatal]
  - Hepatic failure [Fatal]
